FAERS Safety Report 15044762 (Version 1)
Quarter: 2018Q2

REPORT INFORMATION
  Report Type: Spontaneous
  Country: US (occurrence: US)
  Receive Date: 20180621
  Receipt Date: 20180621
  Transmission Date: 20180711
  Serious: No
  Sender: FDA-Public Use
  Company Number: US-009507513-1806USA006342

PATIENT
  Age: 31 Year
  Sex: Female
  Weight: 72.56 kg

DRUGS (2)
  1. PERCOCET [Concomitant]
     Active Substance: ACETAMINOPHEN\OXYCODONE HYDROCHLORIDE
  2. NUVARING [Suspect]
     Active Substance: ETHINYL ESTRADIOL\ETONOGESTREL
     Indication: CONTRACEPTION
     Dosage: 3 WEEKS IN 1 WEEK OUT
     Route: 067
     Dates: start: 201710

REACTIONS (2)
  - Headache [Unknown]
  - Polymenorrhoea [Unknown]

NARRATIVE: CASE EVENT DATE: 2018
